FAERS Safety Report 8780280 (Version 1)
Quarter: 2012Q4

REPORT INFORMATION
  Report Type: Spontaneous
  Country: TW (occurrence: None)
  Receive Date: 20120829
  Receipt Date: 20120829
  Transmission Date: 20130627
  Serious: Yes (Death)
  Sender: FDA-Public Use
  Company Number: FK201202468

PATIENT
  Age: 34 Year
  Sex: Female

DRUGS (3)
  1. HALOPERIDOL [Suspect]
     Indication: BINGE DRINKING
  2. CHLORPROMAZINE [Concomitant]
  3. TRIHEXPHENIDYL [Concomitant]

REACTIONS (14)
  - Diabetic hyperosmolar coma [None]
  - Neuroleptic malignant syndrome [None]
  - Haemodialysis [None]
  - Hypotension [None]
  - Tongue dry [None]
  - Mucosal dryness [None]
  - Blood creatinine increased [None]
  - Neutrophil percentage increased [None]
  - Blood potassium increased [None]
  - Rhabdomyolysis [None]
  - Renal impairment [None]
  - Blood creatine phosphokinase increased [None]
  - Oliguria [None]
  - General physical health deterioration [None]
